FAERS Safety Report 8042594-3 (Version None)
Quarter: 2012Q1

REPORT INFORMATION
  Report Type: 
  Country: None (occurrence: None)
  Receive Date: 20120112
  Receipt Date: 20111108
  Transmission Date: 20120608
  Serious: No
  Sender: FDA-Public Use
  Company Number: US-BAUSCH-2011BL007822

PATIENT
  Age: 43 Year
  Sex: Female

DRUGS (1)
  1. ZIRGAN [Suspect]
     Indication: KERATITIS HERPETIC
     Route: 047
     Dates: start: 20111107, end: 20111107

REACTIONS (4)
  - EYE IRRITATION [None]
  - INSOMNIA [None]
  - EYE PAIN [None]
  - EYELID OEDEMA [None]
